FAERS Safety Report 24053290 (Version 2)
Quarter: 2024Q3

REPORT INFORMATION
  Report Type: Spontaneous
  Country: DE (occurrence: DE)
  Receive Date: 20240705
  Receipt Date: 20240806
  Transmission Date: 20241016
  Serious: Yes (Death)
  Sender: EIGER BIOPHARMACEUTICALS
  Company Number: DE-EIGER BIOPHARMACEUTICALS-EIG-2024-000015

PATIENT
  Age: 22 Year
  Sex: Male

DRUGS (1)
  1. LONAFARNIB [Suspect]
     Active Substance: LONAFARNIB
     Indication: Product used for unknown indication
     Dosage: UNK
     Route: 065

REACTIONS (1)
  - Death [Fatal]
